FAERS Safety Report 16601808 (Version 2)
Quarter: 2019Q3

REPORT INFORMATION
  Report Type: Spontaneous
  Country: BG (occurrence: BG)
  Receive Date: 20190719
  Receipt Date: 20190730
  Transmission Date: 20191004
  Serious: Yes (Life-Threatening, Hospitalization)
  Sender: FDA-Public Use
  Company Number: BG-PFIZER INC-2019292315

PATIENT
  Age: 62 Year
  Sex: Female
  Weight: 96 kg

DRUGS (9)
  1. REMSIMA [Suspect]
     Active Substance: INFLIXIMAB
     Dosage: 3 MG/KG, 3 UNIT EVERY 56 DAYS (FOR 2 YEARS)
     Route: 065
  2. REMSIMA [Suspect]
     Active Substance: INFLIXIMAB
     Dosage: 3 MG/KG, 3 UNIT EVERY 56 DAYS (FOR 2 YEARS)
     Route: 065
  3. FOLIC ACID. [Suspect]
     Active Substance: FOLIC ACID
     Indication: RHEUMATOID ARTHRITIS
     Dosage: 6 MG/KG, WEEKLY
     Route: 065
  4. METHOTREXATE SODIUM. [Suspect]
     Active Substance: METHOTREXATE SODIUM
     Indication: RHEUMATOID ARTHRITIS
     Dosage: 10 MG, WEEKLY
     Route: 065
  5. REMSIMA [Suspect]
     Active Substance: INFLIXIMAB
     Indication: RHEUMATOID ARTHRITIS
     Dosage: 250 MG, UNK
     Route: 042
  6. REMSIMA [Suspect]
     Active Substance: INFLIXIMAB
     Dosage: 3 MG/KG, 3 UNIT EVERY 56 DAYS (FOR 2 YEARS)
     Route: 065
  7. SOLU-MEDROL [Concomitant]
     Active Substance: METHYLPREDNISOLONE SODIUM SUCCINATE
     Indication: PREMEDICATION
     Dosage: 40 MG, UNK
     Route: 042
  8. SERUM PHYSIOLOGICUM [Concomitant]
     Indication: PREMEDICATION
     Dosage: 100 ML, UNK
     Route: 042
  9. SOLU-MEDROL [Concomitant]
     Active Substance: METHYLPREDNISOLONE SODIUM SUCCINATE
     Dosage: 60 MG, UNK
     Route: 042

REACTIONS (1)
  - Hypersensitivity [Recovered/Resolved]

NARRATIVE: CASE EVENT DATE: 20190701
